FAERS Safety Report 19639914 (Version 1)
Quarter: 2021Q3

REPORT INFORMATION
  Report Type: Spontaneous
  Country: US (occurrence: US)
  Receive Date: 20210729
  Receipt Date: 20210729
  Transmission Date: 20211014
  Serious: No
  Sender: FDA-Public Use
  Company Number: US-PERRIGO-21US000157

PATIENT
  Age: 49 Year
  Sex: Male
  Weight: 71.66 kg

DRUGS (3)
  1. ADVAIR HFA [Concomitant]
     Active Substance: FLUTICASONE PROPIONATE\SALMETEROL XINAFOATE
     Indication: HYPERSENSITIVITY
     Dosage: UNK
     Route: 055
  2. MINOXIDIL. [Suspect]
     Active Substance: MINOXIDIL
     Indication: ALOPECIA
     Dosage: 1 ML, BID
     Route: 061
     Dates: start: 202006, end: 202012
  3. ALBUTEROL HFA [Concomitant]
     Active Substance: ALBUTEROL SULFATE
     Indication: HYPERSENSITIVITY
     Dosage: UNK
     Route: 055

REACTIONS (1)
  - Ulcer [Recovering/Resolving]

NARRATIVE: CASE EVENT DATE: 202008
